FAERS Safety Report 17916537 (Version 3)
Quarter: 2020Q4

REPORT INFORMATION
  Report Type: Spontaneous
  Country: US (occurrence: US)
  Receive Date: 20200619
  Receipt Date: 20201207
  Transmission Date: 20210113
  Serious: No
  Sender: FDA-Public Use
  Company Number: US-SUNOVION-2020SUN001700

PATIENT
  Sex: Female

DRUGS (3)
  1. LATUDA [Suspect]
     Active Substance: LURASIDONE HYDROCHLORIDE
     Dosage: 80 MG, QD
     Route: 048
     Dates: start: 2017, end: 202003
  2. LATUDA [Suspect]
     Active Substance: LURASIDONE HYDROCHLORIDE
     Dosage: 100 MG, QD
     Route: 048
     Dates: start: 202003
  3. LATUDA [Suspect]
     Active Substance: LURASIDONE HYDROCHLORIDE
     Indication: PRODUCT USED FOR UNKNOWN INDICATION
     Dosage: 120 MG, QD
     Route: 048

REACTIONS (4)
  - Pollakiuria [Unknown]
  - Feeling abnormal [Unknown]
  - Headache [Unknown]
  - Tongue pruritus [Unknown]

NARRATIVE: CASE EVENT DATE: 2020
